FAERS Safety Report 11720929 (Version 1)
Quarter: 2015Q4

REPORT INFORMATION
  Report Type: Spontaneous
  Country: US (occurrence: US)
  Receive Date: 20151110
  Receipt Date: 20151110
  Transmission Date: 20160304
  Serious: No
  Sender: FDA-Public Use
  Company Number: US-SA-2015SA144391

PATIENT
  Age: 59 Year
  Sex: Male

DRUGS (3)
  1. CRESTOR [Concomitant]
     Active Substance: ROSUVASTATIN CALCIUM
     Dates: start: 2012
  2. ALIROCUMAB PREFILLED PEN [Concomitant]
     Dates: start: 20150820
  3. PRALUENT [Suspect]
     Active Substance: ALIROCUMAB
     Indication: BLOOD CHOLESTEROL INCREASED
     Route: 065
     Dates: start: 20150820

REACTIONS (4)
  - Initial insomnia [Unknown]
  - Pain in extremity [Unknown]
  - Arthralgia [Unknown]
  - Muscle fatigue [Unknown]
